FAERS Safety Report 8770569 (Version 1)
Quarter: 2012Q4

REPORT INFORMATION
  Report Type: 
  Country: US (occurrence: US)
  Receive Date: 20120906
  Receipt Date: 20120906
  Transmission Date: 20130627
  Serious: Yes (Hospitalization, Other)
  Sender: FDA-Public Use
  Company Number: US-ROXANE LABORATORIES, INC.-2012-RO-01772RO

PATIENT
  Age: 57 Year
  Sex: Female

DRUGS (1)
  1. PREDNISONE [Suspect]
     Indication: CHRONIC GRAFT VERSUS HOST DISEASE IN INTESTINE

REACTIONS (4)
  - Acute respiratory distress syndrome [Unknown]
  - Pneumonia legionella [Unknown]
  - Parainfluenzae virus infection [Unknown]
  - Immunoglobulins decreased [Unknown]
